FAERS Safety Report 6312743-3 (Version None)
Quarter: 2009Q3

REPORT INFORMATION
  Report Type: 
  Country: None (occurrence: None)
  Receive Date: 20090818
  Receipt Date: 20090810
  Transmission Date: 20100115
  Serious: Yes (Life-Threatening, Hospitalization, Other)
  Sender: FDA-Public Use
  Company Number: DK-BRISTOL-MYERS SQUIBB COMPANY-14734537

PATIENT
  Age: 75 Year
  Sex: Female

DRUGS (7)
  1. WARFARIN SODIUM [Suspect]
  2. NALOXONE [Suspect]
  3. TRAMADOL HCL [Suspect]
  4. FLUPENTIXOL [Suspect]
  5. BENZODIAZEPINES [Suspect]
  6. TRICYCLIC ANTIDEPRESSANTS [Suspect]
  7. FLUMAZENIL [Suspect]

REACTIONS (7)
  - CONVULSION [None]
  - HALLUCINATION [None]
  - INTERNATIONAL NORMALISED RATIO INCREASED [None]
  - METABOLIC ACIDOSIS [None]
  - OVERDOSE [None]
  - SOMNOLENCE [None]
  - SUICIDE ATTEMPT [None]
